FAERS Safety Report 8281917-7 (Version None)
Quarter: 2012Q2

REPORT INFORMATION
  Report Type: 
  Country: None (occurrence: None)
  Receive Date: 20120413
  Receipt Date: 20120411
  Transmission Date: 20120825
  Serious: Yes (Death, Other)
  Sender: FDA-Public Use
  Company Number: PHHY2012JP030795

PATIENT
  Sex: Male

DRUGS (3)
  1. EXFORGE [Suspect]
     Indication: HYPERTENSION
     Dosage: 1 DF, DAILY
     Route: 048
     Dates: start: 20120124
  2. ACTOS [Concomitant]
  3. DOXAZOSIN MESYLATE [Concomitant]
     Route: 048

REACTIONS (2)
  - CONDITION AGGRAVATED [None]
  - SENILE DEMENTIA [None]
